FAERS Safety Report 20551397 (Version 6)
Quarter: 2022Q3

REPORT INFORMATION
  Report Type: Spontaneous
  Country: GB (occurrence: GB)
  Receive Date: 20220304
  Receipt Date: 20220808
  Transmission Date: 20221026
  Serious: Yes (Death, Hospitalization, Other)
  Sender: FDA-Public Use
  Company Number: GB-EMA-DD-20171211-ajevhp-103059

PATIENT
  Age: 73 Year
  Sex: Female
  Weight: 72 kg

DRUGS (26)
  1. ALLOPURINOL [Suspect]
     Active Substance: ALLOPURINOL
     Indication: Product used for unknown indication
     Dosage: 40 MG, QW
     Route: 048
     Dates: start: 20160223
  2. ALLOPURINOL [Suspect]
     Active Substance: ALLOPURINOL
     Dosage: 200 MG, QD
     Route: 048
     Dates: start: 20160223
  3. ALLOPURINOL [Suspect]
     Active Substance: ALLOPURINOL
     Dosage: 3 MG, QD
     Route: 048
     Dates: start: 20160223, end: 20160228
  4. ALLOPURINOL [Suspect]
     Active Substance: ALLOPURINOL
     Dosage: 40 MG, QD
     Route: 048
     Dates: start: 20160223, end: 20160228
  5. ALLOPURINOL [Suspect]
     Active Substance: ALLOPURINOL
     Dosage: 3 MG, QD
     Route: 048
     Dates: start: 20160223, end: 20160321
  6. ALLOPURINOL [Suspect]
     Active Substance: ALLOPURINOL
     Dosage: 40 MG, QD
     Route: 048
     Dates: start: 20160315
  7. ALLOPURINOL [Suspect]
     Active Substance: ALLOPURINOL
     Dosage: 40 MG, QW
     Route: 048
     Dates: start: 20160315
  8. DEXAMETHASONE [Suspect]
     Active Substance: DEXAMETHASONE
     Indication: Product used for unknown indication
     Dosage: 40 MG(RECEIVED TILL 2-MAR-2016 AND ALSO RECEIVED 15-MAR-2016 (8 DAYS), 5.7143 MILLIGRAM)
     Route: 048
     Dates: start: 20160223, end: 20160302
  9. DEXAMETHASONE [Suspect]
     Active Substance: DEXAMETHASONE
     Dosage: 40 MG,QW (RECEIVED TILL 02 MAR 2016)
     Route: 048
     Dates: start: 20160223, end: 20160315
  10. DEXAMETHASONE [Suspect]
     Active Substance: DEXAMETHASONE
     Dosage: 5.71 MG
     Route: 065
     Dates: start: 20160315
  11. DEXAMETHASONE [Suspect]
     Active Substance: DEXAMETHASONE
     Dosage: 5.71 MG
     Route: 065
     Dates: start: 20160315
  12. DEXAMETHASONE [Suspect]
     Active Substance: DEXAMETHASONE
     Dosage: 40 MG
     Route: 065
  13. DEXAMETHASONE [Suspect]
     Active Substance: DEXAMETHASONE
     Dosage: 40 MG(RECIEVED TILL 02 MAR 2016 AND ALSO RECEIVED 15 MAR 2016 (8DAYS) 5.7143MG)
     Route: 065
     Dates: start: 20160315, end: 20160322
  14. DEXAMETHASONE [Suspect]
     Active Substance: DEXAMETHASONE
     Dosage: 5.71 MG, QW
     Route: 065
     Dates: start: 20160223
  15. POMALIDOMIDE [Suspect]
     Active Substance: POMALIDOMIDE
     Indication: Plasma cell myeloma
     Dosage: 4 MG, 28D
     Route: 048
     Dates: start: 20160223, end: 20160228
  16. POMALIDOMIDE [Suspect]
     Active Substance: POMALIDOMIDE
     Indication: Plasma cell myeloma
     Dosage: 84 MG, 28D (3 MILLIGRAM)
     Route: 048
     Dates: start: 20160223, end: 20160315
  17. POMALIDOMIDE [Suspect]
     Active Substance: POMALIDOMIDE
     Dosage: 63 MG, 28D
     Route: 048
     Dates: start: 20160223, end: 20160315
  18. POMALIDOMIDE [Suspect]
     Active Substance: POMALIDOMIDE
     Dosage: 4 MG, 28D (3 MILLIGRAM, ALSO RECEIVED ON 28-FEB-2016; ALSO RECEIVED 4 MG)
     Route: 048
     Dates: start: 20160223, end: 20160321
  19. POMALIDOMIDE [Suspect]
     Active Substance: POMALIDOMIDE
     Dosage: 84 MG, 28D
     Route: 048
     Dates: start: 20160228, end: 20160321
  20. POMALIDOMIDE [Suspect]
     Active Substance: POMALIDOMIDE
     Dosage: 40 MG (40 MG RECEIVED TILL 2-MAR-2016 AND ALSO RECEIVED TILL 08-MAR-2016(8DAYS) 5.7143MG)
     Route: 065
     Dates: start: 20160315
  21. POMALIDOMIDE [Suspect]
     Active Substance: POMALIDOMIDE
     Dosage: 84 MG (3 MILLIGRAM, ALSO RECEIVED ON 28 FEB 2016: ALSO RECEIVED 4 MG)
     Route: 048
     Dates: start: 20160223, end: 20160228
  22. LENALIDOMIDE [Suspect]
     Active Substance: LENALIDOMIDE
     Indication: Prophylaxis
     Dosage: 200 MG, QD
     Route: 048
     Dates: start: 20160223
  23. LENALIDOMIDE [Suspect]
     Active Substance: LENALIDOMIDE
     Dosage: 40 MG, QD (200 MG)
     Route: 065
     Dates: start: 20160223, end: 20160228
  24. DALTEPARIN [Concomitant]
     Active Substance: DALTEPARIN
     Indication: Anticoagulant therapy
     Dosage: 5000 IU
     Route: 065
     Dates: start: 20160223, end: 20160302
  25. DALTEPARIN [Concomitant]
     Active Substance: DALTEPARIN
     Dosage: 5000 IU
     Route: 065
  26. OMEPRAZOLE [Concomitant]
     Active Substance: OMEPRAZOLE
     Indication: Product used for unknown indication
     Dosage: 20 MG, QD
     Route: 048
     Dates: start: 20160223

REACTIONS (9)
  - Acute kidney injury [Fatal]
  - Thrombocytopenia [Fatal]
  - Rash [Fatal]
  - Off label use [Fatal]
  - Neutropenia [Fatal]
  - Bone marrow failure [Fatal]
  - Pneumonia [Fatal]
  - Plasma cell myeloma [Fatal]
  - Intentional product misuse [Fatal]

NARRATIVE: CASE EVENT DATE: 20160301
